FAERS Safety Report 18168645 (Version 2)
Quarter: 2021Q1

REPORT INFORMATION
  Report Type: Spontaneous
  Country: US (occurrence: US)
  Receive Date: 20200818
  Receipt Date: 20210129
  Transmission Date: 20210419
  Serious: Yes (Disabling, Congenital Anomaly, Other)
  Sender: FDA-Public Use
  Company Number: US-PURDUE-USA-2020-0161549

PATIENT
  Age: 42 Year
  Sex: Female

DRUGS (23)
  1. PERCOCET                           /00446701/ [Suspect]
     Active Substance: ACETAMINOPHEN\OXYCODONE HYDROCHLORIDE\OXYCODONE TEREPHTHALATE
     Indication: HAEMORRHOIDS
  2. HYOSCYAMINE. [Concomitant]
     Active Substance: HYOSCYAMINE
     Indication: PRODUCT USED FOR UNKNOWN INDICATION
     Dosage: 0.125 MG, UNK
     Route: 060
  3. ALBUTEROL                          /00139501/ [Concomitant]
     Active Substance: ALBUTEROL
     Indication: SWELLING
  4. IPRATROPIUM [Concomitant]
     Active Substance: IPRATROPIUM
     Indication: PRODUCT USED FOR UNKNOWN INDICATION
     Route: 055
  5. PERCOCET                           /00446701/ [Suspect]
     Active Substance: ACETAMINOPHEN\OXYCODONE HYDROCHLORIDE\OXYCODONE TEREPHTHALATE
     Indication: PAIN
     Dosage: 330 MG, Q6H PRN
     Route: 048
  6. OXYCODONE HYDROCHLORIDE (SIMILAR TO NDA 22?272) [Suspect]
     Active Substance: OXYCODONE HYDROCHLORIDE
     Indication: BACK PAIN
     Dosage: UNKNOWN
     Route: 048
  7. PROPANOLOL                         /00030001/ [Concomitant]
     Active Substance: PROPRANOLOL HYDROCHLORIDE
     Indication: PRODUCT USED FOR UNKNOWN INDICATION
     Dosage: 10 MG, UNK
     Route: 048
  8. ALBUTEROL                          /00139501/ [Concomitant]
     Active Substance: ALBUTEROL
     Indication: DYSPHONIA
  9. AMPHETAMINE [Concomitant]
     Active Substance: AMPHETAMINE
     Indication: PRODUCT USED FOR UNKNOWN INDICATION
     Dosage: 15 MG, UNK
     Route: 048
  10. CARBIDOPA AND LEVODOPA [Concomitant]
     Active Substance: CARBIDOPA\LEVODOPA
     Indication: PRODUCT USED FOR UNKNOWN INDICATION
     Dosage: 110 MG, UNK
     Route: 048
  11. OXYCODONE/ ACETAMINOPHEN TABLETS [Suspect]
     Active Substance: ACETAMINOPHEN\OXYCODONE HYDROCHLORIDE
     Indication: PRODUCT USED FOR UNKNOWN INDICATION
     Dosage: 335 MG, UNK
     Route: 048
  12. PROMETHEGAN [Concomitant]
     Active Substance: PROMETHAZINE HYDROCHLORIDE
     Indication: PRODUCT USED FOR UNKNOWN INDICATION
     Dosage: 25 MG, Q6H PRN
     Route: 054
  13. HYDROXYZINE PAM [Concomitant]
     Active Substance: HYDROXYZINE PAMOATE
     Indication: PRODUCT USED FOR UNKNOWN INDICATION
     Dosage: 25 MG, UNK
     Route: 048
  14. CARISOPRODOL. [Concomitant]
     Active Substance: CARISOPRODOL
     Indication: PRODUCT USED FOR UNKNOWN INDICATION
     Dosage: 350 MG, UNK
     Route: 048
  15. HYDROCODONE BITARTRATE AND ACETAMINOPHEN [Suspect]
     Active Substance: ACETAMINOPHEN\HYDROCODONE BITARTRATE
     Indication: PRODUCT USED FOR UNKNOWN INDICATION
     Dosage: 330 MG, UNK
     Route: 048
  16. PROPOXYPHENE HYDROCHLORIDE AND ACETAMINOPHEN [Suspect]
     Active Substance: ACETAMINOPHEN\PROPOXYPHENE HYDROCHLORIDE
     Indication: PRODUCT USED FOR UNKNOWN INDICATION
     Dosage: 750 MG, UNK
     Route: 048
  17. BENZTROPINE. [Concomitant]
     Active Substance: BENZTROPINE
     Indication: PRODUCT USED FOR UNKNOWN INDICATION
     Dosage: 0.5 MG, UNK
     Route: 048
  18. ABILIFY [Concomitant]
     Active Substance: ARIPIPRAZOLE
     Indication: PRODUCT USED FOR UNKNOWN INDICATION
     Dosage: 10 MG, UNK
     Route: 048
  19. VENTOLIN HFA [Concomitant]
     Active Substance: ALBUTEROL SULFATE
     Indication: PRODUCT USED FOR UNKNOWN INDICATION
     Route: 065
  20. VERAPAMIL [Concomitant]
     Active Substance: VERAPAMIL HYDROCHLORIDE
     Indication: PRODUCT USED FOR UNKNOWN INDICATION
     Dosage: 120 MG, UNK
     Route: 048
  21. ALBUTEROL                          /00139501/ [Concomitant]
     Active Substance: ALBUTEROL
     Indication: WHEEZING
     Route: 065
  22. ALBUTEROL                          /00139501/ [Concomitant]
     Active Substance: ALBUTEROL
     Indication: DYSPHAGIA
  23. OLANZAPINE. [Concomitant]
     Active Substance: OLANZAPINE
     Indication: PRODUCT USED FOR UNKNOWN INDICATION
     Dosage: 10 MG, UNK
     Route: 048

REACTIONS (80)
  - Disability [Unknown]
  - Social problem [Unknown]
  - Blood calcium decreased [Unknown]
  - Temporomandibular joint syndrome [Unknown]
  - Pain [Unknown]
  - Nasal congestion [Unknown]
  - Muscle strain [Unknown]
  - Panic attack [Unknown]
  - Biopsy skin [Unknown]
  - Post-traumatic stress disorder [Unknown]
  - Actinic keratosis [Unknown]
  - Spinal fracture [Unknown]
  - Fractured coccyx [Unknown]
  - Rib fracture [Unknown]
  - Autoimmune thyroiditis [Unknown]
  - Premature menopause [Unknown]
  - Tenderness [Unknown]
  - Sinusitis [Unknown]
  - Dysarthria [Unknown]
  - Dental caries [Unknown]
  - Aneurysm [Unknown]
  - Chest injury [Unknown]
  - Emotional distress [Unknown]
  - Blood glucose decreased [Unknown]
  - Dehydration [Unknown]
  - Muscular weakness [Unknown]
  - Impaired work ability [Unknown]
  - Memory impairment [Unknown]
  - Human papilloma virus test positive [Unknown]
  - Abscess [Unknown]
  - Diarrhoea [Unknown]
  - Fall [Unknown]
  - Surgery [Unknown]
  - Tooth fracture [Unknown]
  - Haemorrhoids [Unknown]
  - Pain in extremity [Unknown]
  - Hypoaesthesia [Unknown]
  - Headache [Unknown]
  - Bronchitis [Unknown]
  - Victim of abuse [Unknown]
  - Overdose [Unknown]
  - Sepsis [Unknown]
  - Congenital anomaly [Unknown]
  - Injury [Unknown]
  - Gastrointestinal disorder [Unknown]
  - Joint injury [Unknown]
  - Arthropod bite [Unknown]
  - Imprisonment [Unknown]
  - Depression [Unknown]
  - Carpal tunnel syndrome [Unknown]
  - Influenza [Unknown]
  - Intervertebral disc protrusion [Unknown]
  - Weight fluctuation [Unknown]
  - Lower limb fracture [Unknown]
  - Toxicity to various agents [Unknown]
  - Fatigue [Unknown]
  - Cough [Unknown]
  - Abdominal pain [Unknown]
  - Asthenia [Unknown]
  - Blood pressure fluctuation [Unknown]
  - Cervical dysplasia [Unknown]
  - Anxiety [Unknown]
  - Asthma [Unknown]
  - Stress urinary incontinence [Unknown]
  - Skin lesion [Unknown]
  - Contusion [Unknown]
  - Bacterial vaginosis [Unknown]
  - Tooth loss [Unknown]
  - Tardive dyskinesia [Unknown]
  - Diarrhoea infectious [Unknown]
  - Victim of sexual abuse [Unknown]
  - Limb injury [Unknown]
  - Paraesthesia [Unknown]
  - Arthritis [Unknown]
  - Muscle spasms [Unknown]
  - Blood glucose abnormal [Unknown]
  - Furuncle [Unknown]
  - Hypoglycaemia [Unknown]
  - Seborrhoeic keratosis [Unknown]
  - Food poisoning [Unknown]

NARRATIVE: CASE EVENT DATE: 2000
